FAERS Safety Report 19926485 (Version 2)
Quarter: 2021Q4

REPORT INFORMATION
  Report Type: Spontaneous
  Country: BR (occurrence: BR)
  Receive Date: 20211006
  Receipt Date: 20211012
  Transmission Date: 20220303
  Serious: Yes (Other)
  Sender: FDA-Public Use
  Company Number: BR-BIOGEN-2021BI01054253

PATIENT
  Sex: Female

DRUGS (9)
  1. TECFIDERA [Suspect]
     Active Substance: DIMETHYL FUMARATE
     Indication: Multiple sclerosis
     Dosage: MAINTENANCE DOSE
     Route: 048
     Dates: start: 20210821
  2. LOSARTAN POTASSIUM/HCT [Concomitant]
     Indication: Product used for unknown indication
     Dosage: 50MG/25MG
     Route: 065
  3. AMLODIPINE BESYLATE [Concomitant]
     Active Substance: AMLODIPINE BESYLATE
     Indication: Product used for unknown indication
     Route: 065
  4. Milgamma [Concomitant]
     Indication: Product used for unknown indication
     Route: 065
  5. ROSUVASTATIN [Concomitant]
     Active Substance: ROSUVASTATIN
     Indication: Product used for unknown indication
     Route: 065
  6. Non-Hydrolyzed Collagen [Concomitant]
     Indication: Product used for unknown indication
     Route: 065
  7. Luvis (Lutein and Zeaxanthena, omega3 and bilberry) [Concomitant]
     Indication: Product used for unknown indication
     Route: 065
  8. Hydrolyzed Collagen [Concomitant]
     Indication: Product used for unknown indication
     Route: 065
  9. CETIRIZINE HYDROCHLORIDE [Concomitant]
     Active Substance: CETIRIZINE HYDROCHLORIDE
     Indication: Product used for unknown indication
     Dosage: AS NEEDED
     Route: 065

REACTIONS (13)
  - Noninfectious myelitis [Unknown]
  - Spinal pain [Unknown]
  - Overweight [Unknown]
  - Back disorder [Not Recovered/Not Resolved]
  - Tendon rupture [Unknown]
  - Osteoarthritis [Unknown]
  - Intervertebral disc protrusion [Unknown]
  - Malaise [Unknown]
  - Somnolence [Unknown]
  - Paraesthesia [Unknown]
  - Headache [Unknown]
  - Pain [Unknown]
  - Abdominal pain upper [Unknown]

NARRATIVE: CASE EVENT DATE: 20210101
